FAERS Safety Report 21074308 (Version 2)
Quarter: 2022Q3

REPORT INFORMATION
  Report Type: Spontaneous
  Country: US (occurrence: US)
  Receive Date: 20220713
  Receipt Date: 20220725
  Transmission Date: 20221027
  Serious: Yes (Other)
  Sender: FDA-Public Use
  Company Number: US-SIMILASAN-2022USSIMSPO00090

PATIENT

DRUGS (1)
  1. IVIZIA [Suspect]
     Active Substance: POVIDONE
     Indication: Dry eye
     Dosage: 1 DROP
     Route: 047
     Dates: start: 20220530

REACTIONS (1)
  - Thermal burns of eye [Recovered/Resolved]

NARRATIVE: CASE EVENT DATE: 20220530
